FAERS Safety Report 16454380 (Version 1)
Quarter: 2019Q2

REPORT INFORMATION
  Report Type: Spontaneous
  Country: US (occurrence: US)
  Receive Date: 20190619
  Receipt Date: 20190619
  Transmission Date: 20190711
  Serious: Yes (Other)
  Sender: FDA-Public Use
  Company Number: US-ROCHE-2214760

PATIENT
  Sex: Female

DRUGS (7)
  1. ACTEMRA [Suspect]
     Active Substance: TOCILIZUMAB
     Indication: TEMPORAL ARTERITIS
     Dosage: WEEKLY; ONGOING: UNKNOWN
     Route: 058
     Dates: start: 20181019
  2. ACTEMRA [Suspect]
     Active Substance: TOCILIZUMAB
     Dosage: WEEKLY; ONGOING: UNKNOWN
     Route: 058
     Dates: start: 20181024, end: 20181106
  3. ZOCOR [Concomitant]
     Active Substance: SIMVASTATIN
     Route: 048
  4. PREDNISONE. [Concomitant]
     Active Substance: PREDNISONE
     Route: 048
  5. SYNTHROID [Concomitant]
     Active Substance: LEVOTHYROXINE SODIUM
     Indication: HYPOTHYROIDISM
     Route: 048
  6. METFORMIN [Concomitant]
     Active Substance: METFORMIN HYDROCHLORIDE
     Indication: HYPERGLYCAEMIA
     Route: 048
  7. LOSARTAN. [Concomitant]
     Active Substance: LOSARTAN
     Indication: HYPERTENSION
     Route: 048

REACTIONS (2)
  - Dizziness [Unknown]
  - Diarrhoea [Recovering/Resolving]
